FAERS Safety Report 13388350 (Version 2)
Quarter: 2017Q2

REPORT INFORMATION
  Report Type: Spontaneous
  Country: DE (occurrence: DE)
  Receive Date: 20170330
  Receipt Date: 20170605
  Transmission Date: 20170830
  Serious: Yes (Hospitalization)
  Sender: FDA-Public Use
  Company Number: PHHY2017DE004771

PATIENT
  Sex: Male
  Weight: 21.5 kg

DRUGS (3)
  1. EXJADE [Suspect]
     Active Substance: DEFERASIROX
     Indication: HAEMOSIDEROSIS
     Dosage: 540 MG (25 MG/KG), QD
     Route: 048
     Dates: start: 20161221
  2. EXJADE [Suspect]
     Active Substance: DEFERASIROX
     Indication: THALASSAEMIA BETA
     Dosage: 540 MG (25 MG/KG), QD
     Route: 048
     Dates: end: 20161211
  3. EXJADE [Suspect]
     Active Substance: DEFERASIROX
     Dosage: 810 MG,  (360 MG ON DAY 1 AND 450 MG ON DAY 2)
     Route: 048

REACTIONS (5)
  - Renal impairment [Recovered/Resolved]
  - Abdominal pain [Recovered/Resolved]
  - Vomiting [Recovered/Resolved]
  - Metabolic acidosis [Recovered/Resolved]
  - Gastroenteritis [Recovered/Resolved]

NARRATIVE: CASE EVENT DATE: 20161210
